FAERS Safety Report 20966481 (Version 4)
Quarter: 2022Q3

REPORT INFORMATION
  Report Type: Report from Study
  Country: CA (occurrence: CA)
  Receive Date: 20220616
  Receipt Date: 20220809
  Transmission Date: 20221027
  Serious: Yes (Hospitalization, Other)
  Sender: FDA-Public Use
  Company Number: CA-JNJFOC-20220617573

PATIENT
  Age: 7 Year
  Sex: Male
  Weight: 18 kg

DRUGS (3)
  1. REMICADE [Suspect]
     Active Substance: INFLIXIMAB
     Indication: Colitis ulcerative
     Dosage: ON 23-JUN-2022, THE PATIENT RECEIVED 5TH INFLIXIMAB, RECOMBINANT INFUSION DOSE OF 200 MG AND PARTIAL
     Route: 041
     Dates: start: 20220315
  2. REMICADE [Suspect]
     Active Substance: INFLIXIMAB
     Dosage: RELOADED ON 200MG REMICADE EVERY 4 WEEKS.
     Route: 041
     Dates: start: 2022
  3. REMICADE [Suspect]
     Active Substance: INFLIXIMAB
     Dosage: PATIENT RECEIVED 350MG EVERY 4 WEEKS INSTEAD OF 340MG
     Route: 041
     Dates: start: 2022

REACTIONS (13)
  - Haematochezia [Unknown]
  - Weight decreased [Unknown]
  - Therapeutic product effect incomplete [Unknown]
  - COVID-19 [Unknown]
  - Pallor [Unknown]
  - Mucous stools [Unknown]
  - Dyschezia [Unknown]
  - Hypophagia [Unknown]
  - General physical health deterioration [Unknown]
  - Abdominal pain [Unknown]
  - Drug level below therapeutic [Unknown]
  - Frequent bowel movements [Unknown]
  - Off label use [Unknown]

NARRATIVE: CASE EVENT DATE: 20220101
